FAERS Safety Report 7376326-9 (Version None)
Quarter: 2011Q1

REPORT INFORMATION
  Report Type: 
  Country: None (occurrence: None)
  Receive Date: 20110316
  Receipt Date: 20110310
  Transmission Date: 20110831
  Serious: Yes (Hospitalization)
  Sender: FDA-Public Use
  Company Number: 2007-168983-NL

PATIENT
  Age: 34 Year
  Sex: Female
  Weight: 113 kg

DRUGS (7)
  1. PHENTERMINE [Concomitant]
  2. NUVARING [Suspect]
     Indication: CONTRACEPTION
     Dates: start: 20050901, end: 20051201
  3. NUVARING [Suspect]
     Indication: DYSMENORRHOEA
     Dates: start: 20050901, end: 20051201
  4. NUVARING [Suspect]
     Indication: HORMONE LEVEL ABNORMAL
     Dates: start: 20050901, end: 20051201
  5. NUVARING [Suspect]
     Indication: CONTRACEPTION
     Dates: start: 20070101, end: 20070601
  6. NUVARING [Suspect]
     Indication: DYSMENORRHOEA
     Dates: start: 20070101, end: 20070601
  7. NUVARING [Suspect]
     Indication: HORMONE LEVEL ABNORMAL
     Dates: start: 20070101, end: 20070601

REACTIONS (29)
  - HYPERGLYCAEMIA [None]
  - HYPERLIPIDAEMIA [None]
  - VOMITING [None]
  - NASOPHARYNGITIS [None]
  - CHEST PAIN [None]
  - DIARRHOEA [None]
  - NAUSEA [None]
  - THYROID DISORDER [None]
  - ATELECTASIS [None]
  - ABDOMINAL PAIN UPPER [None]
  - LEUKOCYTOSIS [None]
  - UTERINE POLYP [None]
  - TRAUMATIC HAEMATOMA [None]
  - PNEUMONIA [None]
  - FIBRIN D DIMER INCREASED [None]
  - HYPERHIDROSIS [None]
  - CONTUSION [None]
  - PULMONARY EMBOLISM [None]
  - CONDITION AGGRAVATED [None]
  - HYSTEROSCOPY [None]
  - COAGULOPATHY [None]
  - PULMONARY INFARCTION [None]
  - DIZZINESS [None]
  - MIGRAINE [None]
  - IRON DEFICIENCY ANAEMIA [None]
  - TREMOR [None]
  - HEART RATE IRREGULAR [None]
  - MENORRHAGIA [None]
  - LIMB INJURY [None]
